FAERS Safety Report 19443563 (Version 1)
Quarter: 2021Q2

REPORT INFORMATION
  Report Type: Spontaneous
  Country: US (occurrence: US)
  Receive Date: 20210621
  Receipt Date: 20210621
  Transmission Date: 20210717
  Serious: Yes (Hospitalization)
  Sender: FDA-Public Use
  Company Number: US-BAYER-2021-157320

PATIENT
  Age: 50 Year
  Sex: Female

DRUGS (2)
  1. ANTICOAGULATION [Concomitant]
     Active Substance: UNSPECIFIED INGREDIENT
  2. MIRENA [Suspect]
     Active Substance: LEVONORGESTREL
     Indication: HEAVY MENSTRUAL BLEEDING
     Dosage: 20  ?G PER DAY ,CONTINUOUSLY
     Route: 015

REACTIONS (2)
  - Hypertension [Recovered/Resolved]
  - Cerebrovascular accident [Recovered/Resolved]

NARRATIVE: CASE EVENT DATE: 20210606
